FAERS Safety Report 21869977 (Version 8)
Quarter: 2023Q1

REPORT INFORMATION
  Report Type: Spontaneous
  Country: US (occurrence: US)
  Receive Date: 20230117
  Receipt Date: 20230228
  Transmission Date: 20230417
  Serious: No
  Sender: FDA-Public Use
  Company Number: US-UNITED THERAPEUTICS-UNT-2022-031644

PATIENT
  Age: 43 Year
  Sex: Female
  Weight: 72.562 kg

DRUGS (6)
  1. REMODULIN [Suspect]
     Active Substance: TREPROSTINIL
     Indication: Pulmonary arterial hypertension
     Dosage: 0.065 ?G/KG, CONTINUING
     Route: 058
  2. REMODULIN [Suspect]
     Active Substance: TREPROSTINIL
     Dosage: UNK, CONTINUING
     Route: 058
  3. REMODULIN [Suspect]
     Active Substance: TREPROSTINIL
     Dosage: UNK, CONTINUING
     Route: 058
     Dates: start: 20181025
  4. OPSUMIT [Suspect]
     Active Substance: MACITENTAN
     Indication: Product used for unknown indication
     Dosage: UNK
     Route: 065
  5. SILDENAFIL [Suspect]
     Active Substance: SILDENAFIL
     Indication: Product used for unknown indication
     Dosage: UNK
     Route: 065
  6. XARELTO [Concomitant]
     Active Substance: RIVAROXABAN
     Indication: Product used for unknown indication
     Dosage: UNK
     Route: 065

REACTIONS (21)
  - Dyspnoea exertional [Unknown]
  - Device infusion issue [Unknown]
  - Infusion site haemorrhage [Recovered/Resolved]
  - Headache [Recovering/Resolving]
  - Nausea [Unknown]
  - Infusion site pain [Unknown]
  - Vomiting [Unknown]
  - Infusion site extravasation [Unknown]
  - Incorrect dose administered [Recovered/Resolved]
  - Device dislocation [Unknown]
  - Infusion site erythema [Unknown]
  - Infusion site swelling [Not Recovered/Not Resolved]
  - Pain in extremity [Unknown]
  - Infusion site discharge [Unknown]
  - Purulent discharge [Unknown]
  - Fatigue [Unknown]
  - Infusion site nodule [Recovering/Resolving]
  - Infusion site discomfort [Unknown]
  - Infusion site bruising [Recovering/Resolving]
  - Diarrhoea [Unknown]
  - Decreased appetite [Unknown]

NARRATIVE: CASE EVENT DATE: 20230111
